FAERS Safety Report 9366669 (Version 1)
Quarter: 2013Q2

REPORT INFORMATION
  Report Type: Spontaneous
  Country: FR (occurrence: FR)
  Receive Date: 20130625
  Receipt Date: 20130625
  Transmission Date: 20140414
  Serious: Yes (Hospitalization)
  Sender: FDA-Public Use
  Company Number: FR-009507513-1306FRA007217

PATIENT
  Age: 65 Year
  Sex: Female

DRUGS (5)
  1. FOSAVANCE [Suspect]
     Indication: OSTEOPOROSIS
     Dosage: 1 DF, QW
     Route: 048
  2. EFFEXOR [Suspect]
     Indication: DEPRESSION
     Dosage: 2 DF, QD
     Dates: end: 20080408
  3. STILNOX [Suspect]
     Indication: PRODUCT USED FOR UNKNOWN INDICATION
     Dosage: 1.5 DF, QD
  4. COAPROVEL [Suspect]
     Indication: HYPERTENSION
     Dosage: 1 DF, QD
  5. OMEPRAZOLE [Suspect]
     Indication: GASTRIC ULCER
     Dosage: 1 DF, QD

REACTIONS (2)
  - Convulsion [Recovered/Resolved]
  - Malaise [Recovered/Resolved]
